FAERS Safety Report 13253194 (Version 1)
Quarter: 2017Q1

REPORT INFORMATION
  Report Type: Other
  Country: JP (occurrence: JP)
  Receive Date: 20170220
  Receipt Date: 20170220
  Transmission Date: 20170428
  Serious: Yes (Other)
  Sender: FDA-Public Use
  Company Number: JP-WARNER CHILCOTT, LLC-1063352

PATIENT
  Sex: Female

DRUGS (1)
  1. BENET [Suspect]
     Active Substance: RISEDRONATE SODIUM
     Route: 048

REACTIONS (1)
  - Cytopenia [Unknown]

NARRATIVE: CASE EVENT DATE: 20170106
